FAERS Safety Report 13274228 (Version 1)
Quarter: 2017Q1

REPORT INFORMATION
  Report Type: Spontaneous
  Country: JP (occurrence: JP)
  Receive Date: 20170227
  Receipt Date: 20170227
  Transmission Date: 20170428
  Serious: Yes (Other)
  Sender: FDA-Public Use
  Company Number: JP-SA-2017SA030384

PATIENT
  Age: 76 Year
  Sex: Female

DRUGS (3)
  1. LANTUS [Suspect]
     Active Substance: INSULIN GLARGINE
     Indication: TYPE 2 DIABETES MELLITUS
     Route: 058
  2. ITANGO PEN [Concomitant]
     Active Substance: INSULIN NOS
  3. HUMALOG [Suspect]
     Active Substance: INSULIN LISPRO
     Indication: TYPE 2 DIABETES MELLITUS
     Route: 065

REACTIONS (3)
  - Amyloidosis [Not Recovered/Not Resolved]
  - Hyperglycaemia [Unknown]
  - Anti-GAD antibody positive [Not Recovered/Not Resolved]

NARRATIVE: CASE EVENT DATE: 2011
